FAERS Safety Report 21927445 (Version 1)
Quarter: 2023Q1

REPORT INFORMATION
  Report Type: Spontaneous
  Country: US (occurrence: US)
  Receive Date: 20230130
  Receipt Date: 20230130
  Transmission Date: 20230418
  Serious: No
  Sender: FDA-Public Use
  Company Number: US-FreseniusKabi-FK202301048

PATIENT

DRUGS (2)
  1. HYDROMORPHONE HCL [Suspect]
     Active Substance: HYDROMORPHONE HYDROCHLORIDE
     Indication: Pain
     Route: 065
  2. PRIALT [Suspect]
     Active Substance: ZICONOTIDE ACETATE
     Indication: Pain
     Route: 065

REACTIONS (4)
  - Muscle spasms [Unknown]
  - Parosmia [Unknown]
  - Pain [Unknown]
  - Insomnia [Unknown]
